FAERS Safety Report 6925351-8 (Version None)
Quarter: 2010Q3

REPORT INFORMATION
  Report Type: 
  Country: None (occurrence: None)
  Receive Date: 20100811
  Receipt Date: 20100802
  Transmission Date: 20110219
  Serious: Yes (Hospitalization)
  Sender: FDA-Public Use
  Company Number: 2010EU003837

PATIENT
  Sex: Male
  Weight: 94 kg

DRUGS (1)
  1. TACROLIMUS [Suspect]
     Indication: LIVER TRANSPLANT
     Dosage: 6 MG, D, ORAL
     Route: 048
     Dates: start: 20100723, end: 20100723

REACTIONS (1)
  - GLAUCOMA [None]
